FAERS Safety Report 9314189 (Version 2)
Quarter: 2013Q2

REPORT INFORMATION
  Report Type: Spontaneous
  Country: JP (occurrence: JP)
  Receive Date: 20130529
  Receipt Date: 20130605
  Transmission Date: 20140414
  Serious: Yes (Other)
  Sender: FDA-Public Use
  Company Number: JP-ACCORD-017756

PATIENT
  Age: 3 Year
  Sex: Male

DRUGS (3)
  1. ETOPOSIDE [Suspect]
     Indication: HEPATOBLASTOMA
     Dosage: 100 MG/SQM
  2. IRINOTECAN HYDROCHLORIDE [Suspect]
     Indication: HEPATOBLASTOMA
     Dosage: 100 MG/SQM
  3. CARBOPLATIN [Concomitant]
     Indication: HEPATOBLASTOMA

REACTIONS (4)
  - Bone marrow failure [Unknown]
  - Diarrhoea [Unknown]
  - Sepsis [Unknown]
  - Off label use [Unknown]
